FAERS Safety Report 5392057-9 (Version None)
Quarter: 2007Q3

REPORT INFORMATION
  Report Type: 
  Country: None (occurrence: None)
  Receive Date: 20070720
  Receipt Date: 20070718
  Transmission Date: 20080115
  Serious: Yes (Other)
  Sender: FDA-Public Use
  Company Number: US-BRISTOL-MYERS SQUIBB COMPANY-13851183

PATIENT
  Sex: Female

DRUGS (1)
  1. TEQUIN [Suspect]
     Indication: INFECTION
     Dates: start: 20050714

REACTIONS (1)
  - TYPE 2 DIABETES MELLITUS [None]
